FAERS Safety Report 7656507-7 (Version None)
Quarter: 2011Q3

REPORT INFORMATION
  Report Type: 
  Country: None (occurrence: None)
  Receive Date: 20110804
  Receipt Date: 20100915
  Transmission Date: 20111222
  Serious: No
  Sender: FDA-Public Use
  Company Number: US-BAUSCH-2010BL005203

PATIENT
  Age: 34 Year
  Sex: Male

DRUGS (2)
  1. OPCON-A [Suspect]
     Indication: EYE PRURITUS
     Route: 047
     Dates: start: 20100915
  2. OPCON-A [Suspect]
     Indication: EYE IRRITATION
     Route: 047
     Dates: start: 20100915

REACTIONS (4)
  - MYDRIASIS [None]
  - PHOTOPHOBIA [None]
  - WRONG TECHNIQUE IN DRUG USAGE PROCESS [None]
  - INCORRECT DOSE ADMINISTERED [None]
